FAERS Safety Report 4693033-1 (Version None)
Quarter: 2005Q2

REPORT INFORMATION
  Report Type: 
  Country: None (occurrence: None)
  Receive Date: 20050616
  Receipt Date: 20050604
  Transmission Date: 20051028
  Serious: Yes (Other)
  Sender: FDA-Public Use
  Company Number: 2005083009

PATIENT
  Age: 4 Year
  Sex: Female
  Weight: 19.0511 kg

DRUGS (3)
  1. CHILDREN'S PEDIACARE LONG ACTING COUGH PLUS COLD (PSEUDOEPHEDRINE, DEX [Suspect]
     Dosage: 1 TSP ONCE, ORAL
     Route: 048
     Dates: start: 20050603, end: 20050603
  2. MOTRIN [Suspect]
     Dosage: UNSPECIFIED AMOUNT ONCE, ORAL
     Route: 048
     Dates: start: 20050603, end: 20050603
  3. ACETAMINOPHEN [Suspect]
     Dosage: UNSPECIFIED AMOUNT ONCE, ORAL
     Route: 048
     Dates: start: 20050603, end: 20050603

REACTIONS (4)
  - DIFFICULTY IN WALKING [None]
  - GAIT DISTURBANCE [None]
  - HYPERSENSITIVITY [None]
  - MALAISE [None]
